FAERS Safety Report 6355982-8 (Version None)
Quarter: 2009Q3

REPORT INFORMATION
  Report Type: 
  Country: None (occurrence: None)
  Receive Date: 20090914
  Receipt Date: 20090914
  Transmission Date: 20100115
  Serious: Yes (Life-Threatening, Disabling)
  Sender: FDA-Public Use
  Company Number: None

PATIENT
  Age: 48 Year
  Sex: Male
  Weight: 99.3377 kg

DRUGS (2)
  1. ZEMURON [Suspect]
     Indication: ENDOTRACHEAL INTUBATION
     Dosage: BOLUS DOSE
     Dates: start: 20090902, end: 20090902
  2. ZEMURON [Suspect]
     Indication: NEUROMUSCULAR BLOCKADE
     Dosage: BOLUS DOSE
     Dates: start: 20090902, end: 20090902

REACTIONS (2)
  - ELECTROMECHANICAL DISSOCIATION [None]
  - HYPOTENSION [None]
